FAERS Safety Report 25355411 (Version 1)
Quarter: 2025Q2

REPORT INFORMATION
  Report Type: Spontaneous
  Country: US (occurrence: US)
  Receive Date: 20250524
  Receipt Date: 20250524
  Transmission Date: 20250717
  Serious: No
  Sender: PL DEVELOPMENTS
  Company Number: US-P+L Developments of Newyork Corporation-2177429

PATIENT
  Age: 68 Year
  Sex: Female

DRUGS (4)
  1. LORATADINE [Suspect]
     Active Substance: LORATADINE
     Indication: Hypersensitivity
  2. LORATADINE [Suspect]
     Active Substance: LORATADINE
     Indication: Nasopharyngitis
  3. ALEVE [Suspect]
     Active Substance: NAPROXEN SODIUM
  4. Bernadryl [Concomitant]

REACTIONS (2)
  - Dizziness [Recovered/Resolved]
  - Asthenia [Recovered/Resolved]
